FAERS Safety Report 14307921 (Version 3)
Quarter: 2019Q4

REPORT INFORMATION
  Report Type: Report from Study
  Country: US (occurrence: US)
  Receive Date: 20171220
  Receipt Date: 20191119
  Transmission Date: 20200122
  Serious: No
  Sender: FDA-Public Use
  Company Number: PHEH2017US041006

PATIENT
  Sex: Female

DRUGS (3)
  1. SANDIMMUNE [Suspect]
     Active Substance: CYCLOSPORINE
     Indication: PRODUCT USED FOR UNKNOWN INDICATION
     Dosage: 100 MG
     Route: 048
  2. NEORAL [Suspect]
     Active Substance: CYCLOSPORINE
     Indication: PRODUCT USED FOR UNKNOWN INDICATION
     Dosage: 100 MG
     Route: 048
  3. PROMACTA [Suspect]
     Active Substance: ELTROMBOPAG OLAMINE
     Indication: PRODUCT USED FOR UNKNOWN INDICATION
     Dosage: 75 MG
     Route: 048

REACTIONS (6)
  - Pyrexia [Unknown]
  - Malaise [Unknown]
  - Haemoglobin decreased [Unknown]
  - White blood cell count decreased [Unknown]
  - Platelet count decreased [Unknown]
  - Dizziness [Unknown]
